FAERS Safety Report 17082782 (Version 1)
Quarter: 2019Q4

REPORT INFORMATION
  Report Type: Spontaneous
  Country: DE (occurrence: DE)
  Receive Date: 20191127
  Receipt Date: 20191127
  Transmission Date: 20200122
  Serious: Yes (Life-Threatening, Hospitalization)
  Sender: FDA-Public Use
  Company Number: DE-MYLANLABS-2019M1116267

PATIENT
  Age: 77 Year
  Sex: Female

DRUGS (11)
  1. PLAVIX [Suspect]
     Active Substance: CLOPIDOGREL BISULFATE
     Indication: PRODUCT USED FOR UNKNOWN INDICATION
     Dosage: 75 MILLIGRAM, ,1-0-0-0
  2. XARELTO [Suspect]
     Active Substance: RIVAROXABAN
     Indication: PRODUCT USED FOR UNKNOWN INDICATION
     Dosage: 10 MILLIGRAM, QD
  3. VALSARTAN. [Concomitant]
     Active Substance: VALSARTAN
     Dosage: 80 MILLIGRAM, BID,1-0-1-0
  4. PYRIDOXIN HCL [Concomitant]
     Active Substance: PYRIDOXINE HYDROCHLORIDE
     Dosage: UNK, QD,NK MG, 1-0-0-0
  5. CYANOCOBALAMIN. [Concomitant]
     Active Substance: CYANOCOBALAMIN
     Dosage: UNK, QD,NK MG, 1-0-0-O
  6. LEVOTHYROXIN [Concomitant]
     Active Substance: LEVOTHYROXINE
     Dosage: 25 MICROGRAM, QD,1-0-0-0
  7. ACETYLSALICYLSAEURE [Suspect]
     Active Substance: ASPIRIN
     Indication: PRODUCT USED FOR UNKNOWN INDICATION
     Dosage: 100 MILLIGRAM, QD,0-1-0-0
  8. CARMEN                             /01366402/ [Concomitant]
     Active Substance: LERCANIDIPINE
     Dosage: UNK, QD,NK MG, 1-0-0-0
  9. CITALOPRAM [Suspect]
     Active Substance: CITALOPRAM HYDROBROMIDE
     Indication: PRODUCT USED FOR UNKNOWN INDICATION
     Dosage: 20 MILLIGRAM, QD,1-0-0-0
  10. FOLSAEURE [Concomitant]
     Active Substance: FOLIC ACID
     Dosage: UNK, QD,NK MG, 1-0-0-0
  11. PANTOPRAZOL                        /01263201/ [Concomitant]
     Active Substance: PANTOPRAZOLE
     Dosage: 40 MILLIGRAM, QD, 0-1-0-0

REACTIONS (6)
  - Dizziness [Unknown]
  - Shock haemorrhagic [Unknown]
  - Dyspnoea [Unknown]
  - Product prescribing error [Unknown]
  - Haematochezia [Unknown]
  - Asthenia [Unknown]
